FAERS Safety Report 9936029 (Version 1)
Quarter: 2014Q1

REPORT INFORMATION
  Report Type: Spontaneous
  Country: IN (occurrence: IN)
  Receive Date: 20140228
  Receipt Date: 20140228
  Transmission Date: 20141002
  Serious: Yes (Death, Other)
  Sender: FDA-Public Use
  Company Number: PHHY2014IN024269

PATIENT
  Age: 52 Year
  Sex: Male

DRUGS (3)
  1. CICLOSPORIN [Suspect]
     Indication: IMMUNOSUPPRESSION
  2. PREDNISOLONE [Suspect]
     Indication: IMMUNOSUPPRESSION
  3. AZATHIOPRINE [Suspect]
     Indication: IMMUNOSUPPRESSION

REACTIONS (11)
  - Sepsis [Fatal]
  - Testicular infarction [Unknown]
  - Wound [Unknown]
  - Urinary fistula [Unknown]
  - Bone marrow failure [Unknown]
  - Scrotal ulcer [Unknown]
  - Lymphoproliferative disorder [Unknown]
  - Orchitis [Unknown]
  - B-cell lymphoma [Unknown]
  - Pyrexia [Unknown]
  - Pain [Unknown]
